FAERS Safety Report 15827736 (Version 2)
Quarter: 2019Q1

REPORT INFORMATION
  Report Type: Spontaneous
  Country: GB (occurrence: GB)
  Receive Date: 20190115
  Receipt Date: 20190122
  Transmission Date: 20190417
  Serious: Yes (Death, Other)
  Sender: FDA-Public Use
  Company Number: GB-PFIZER INC-2019013160

PATIENT
  Age: 27 Year
  Sex: Female

DRUGS (6)
  1. BOSENTAN. [Suspect]
     Active Substance: BOSENTAN
     Indication: PULMONARY ARTERIAL HYPERTENSION
     Dosage: 250 MG, 2X/DAY(BID)
     Route: 065
     Dates: start: 201612
  2. WARFARIN [Concomitant]
     Active Substance: WARFARIN
     Indication: ANTICOAGULANT THERAPY
     Dosage: UNK
     Route: 065
  3. AMLODIPINE BESILATE [Suspect]
     Active Substance: AMLODIPINE BESYLATE
     Dosage: 20 MG, 1X/DAY (QD)
     Route: 065
     Dates: start: 201612
  4. AMLODIPINE BESILATE [Suspect]
     Active Substance: AMLODIPINE BESYLATE
     Indication: PULMONARY ARTERIAL HYPERTENSION
     Dosage: 20 MG, 1X/DAY (QD)
     Route: 065
     Dates: start: 201403
  5. AMLODIPINE BESILATE [Suspect]
     Active Substance: AMLODIPINE BESYLATE
     Dosage: 20 MG, 1X/DAY (QD)
     Route: 065
     Dates: start: 201412, end: 201509
  6. SILDENAFIL CITRATE. [Suspect]
     Active Substance: SILDENAFIL CITRATE
     Indication: PULMONARY ARTERIAL HYPERTENSION
     Dosage: 20 MG, 3X/DAY
     Route: 065
     Dates: start: 201612

REACTIONS (3)
  - Condition aggravated [Fatal]
  - Product use in unapproved indication [Unknown]
  - Drug ineffective [Fatal]
